FAERS Safety Report 13571451 (Version 3)
Quarter: 2017Q2

REPORT INFORMATION
  Report Type: Spontaneous
  Country: US (occurrence: US)
  Receive Date: 20170523
  Receipt Date: 20170525
  Transmission Date: 20170830
  Serious: No
  Sender: FDA-Public Use
  Company Number: US-PFIZER INC-2017218423

PATIENT
  Age: 62 Year
  Sex: Female
  Weight: 102.49 kg

DRUGS (7)
  1. LYRICA [Suspect]
     Active Substance: PREGABALIN
     Indication: ARTHRITIS
     Dosage: 225MG, 1 CAPSULES PER DAY
     Route: 048
  2. TRAZODONE [Suspect]
     Active Substance: TRAZODONE HYDROCHLORIDE
     Indication: SOMNOLENCE
     Dosage: 50MG PER TABLET, 3 TABLETS ONCE PER DAY AT BEDTIME
     Route: 048
  3. TRAZODONE [Suspect]
     Active Substance: TRAZODONE HYDROCHLORIDE
     Indication: DEPRESSION
     Dosage: UNK
     Route: 048
     Dates: start: 20170510
  4. LYRICA [Suspect]
     Active Substance: PREGABALIN
     Indication: FIBROMYALGIA
     Dosage: 225MG, 2 CAPSULES PER DAY
     Route: 048
  5. LYRICA [Suspect]
     Active Substance: PREGABALIN
     Dosage: 150 MG, UNK
     Route: 048
     Dates: start: 20170510
  6. ROPINIROLE. [Suspect]
     Active Substance: ROPINIROLE
     Indication: RESTLESS LEGS SYNDROME
     Dosage: 4 MG, DAILY,(AT NIGHT)
     Route: 048
  7. ROPINIROLE. [Suspect]
     Active Substance: ROPINIROLE
     Dosage: 2 MG, 1X/DAY (AT NIGHT)
     Dates: start: 20170510

REACTIONS (7)
  - Condition aggravated [Not Recovered/Not Resolved]
  - Condition aggravated [Recovering/Resolving]
  - Pain [Unknown]
  - Speech disorder [Not Recovered/Not Resolved]
  - Amnesia [Recovering/Resolving]
  - Pain in extremity [Unknown]
  - Middle insomnia [Unknown]

NARRATIVE: CASE EVENT DATE: 201607
